FAERS Safety Report 5679498-7 (Version None)
Quarter: 2008Q1

REPORT INFORMATION
  Report Type: 
  Country: None (occurrence: None)
  Receive Date: 20080325
  Receipt Date: 20080313
  Transmission Date: 20080703
  Serious: Yes (Other)
  Sender: FDA-Public Use
  Company Number: US-PFIZER INC-2008014418

PATIENT
  Sex: Male

DRUGS (14)
  1. CHANTIX [Suspect]
  2. LYRICA [Suspect]
  3. NEURONTIN [Concomitant]
  4. KLONOPIN [Concomitant]
  5. AVAPRO [Concomitant]
  6. SECTRAL [Concomitant]
  7. ASPIRIN [Concomitant]
  8. VITAMIN CAP [Concomitant]
  9. SEROQUEL [Concomitant]
  10. CYMBALTA [Concomitant]
  11. PULMICORT [Concomitant]
     Route: 055
  12. AMOXICILLIN [Concomitant]
  13. DEPAKOTE [Concomitant]
  14. ALBUTEROL [Concomitant]
     Route: 055

REACTIONS (14)
  - COMPLEX REGIONAL PAIN SYNDROME [None]
  - DEPRESSION [None]
  - DRUG INEFFECTIVE [None]
  - FALL [None]
  - FEELING ABNORMAL [None]
  - HYPERLIPIDAEMIA [None]
  - HYPERTRIGLYCERIDAEMIA [None]
  - JOINT STABILISATION [None]
  - MUSCLE ATROPHY [None]
  - MUSCULAR WEAKNESS [None]
  - NIGHTMARE [None]
  - PAIN [None]
  - POOR QUALITY SLEEP [None]
  - SUICIDAL IDEATION [None]
